FAERS Safety Report 20305647 (Version 1)
Quarter: 2022Q1

REPORT INFORMATION
  Report Type: Spontaneous
  Country: CN (occurrence: CN)
  Receive Date: 20220106
  Receipt Date: 20220106
  Transmission Date: 20220423
  Serious: Yes (Other)
  Sender: FDA-Public Use
  Company Number: CN-TAKEDA-2021TUS082862

PATIENT

DRUGS (3)
  1. NINLARO [Suspect]
     Active Substance: IXAZOMIB CITRATE
     Indication: Plasma cell myeloma refractory
     Dosage: 4 MILLIGRAM
     Route: 048
  2. DEXAMETHASONE [Concomitant]
     Active Substance: DEXAMETHASONE
     Dosage: 40 MILLIGRAM
     Route: 048
  3. LENALIDOMIDE [Concomitant]
     Active Substance: LENALIDOMIDE
     Dosage: 25 MILLIGRAM
     Route: 048

REACTIONS (12)
  - Thrombocytopenia [Recovering/Resolving]
  - Pneumonia [Recovering/Resolving]
  - Abdominal distension [Recovering/Resolving]
  - Asthenia [Recovering/Resolving]
  - Insomnia [Recovering/Resolving]
  - Nausea [Recovering/Resolving]
  - Vomiting [Recovering/Resolving]
  - Diarrhoea [Recovering/Resolving]
  - Constipation [Recovering/Resolving]
  - Rash [Recovering/Resolving]
  - Herpes zoster [Recovering/Resolving]
  - Oedema peripheral [Recovering/Resolving]
